FAERS Safety Report 6061401-1 (Version None)
Quarter: 2009Q1

REPORT INFORMATION
  Report Type: 
  Country: None (occurrence: None)
  Receive Date: 20090129
  Receipt Date: 20090129
  Transmission Date: 20090719
  Serious: Yes (Hospitalization)
  Sender: FDA-Public Use
  Company Number: None

PATIENT
  Age: 22 Year
  Sex: Male
  Weight: 61.9614 kg

DRUGS (3)
  1. ABILIFY [Suspect]
     Indication: BIPOLAR DISORDER
     Dosage: 10MG  ONCE DAILY PO
     Route: 048
     Dates: start: 20080801, end: 20090125
  2. ABILIFY [Suspect]
     Indication: DEPRESSION
     Dosage: 10MG  ONCE DAILY PO
     Route: 048
     Dates: start: 20080801, end: 20090125
  3. ZANAFLEX [Suspect]
     Indication: MUSCLE SPASMS
     Dosage: 4MG  TWICE DAILY PO
     Route: 048
     Dates: start: 20090125, end: 20090125

REACTIONS (4)
  - DRUG INTERACTION [None]
  - HYPOTENSION [None]
  - LETHARGY [None]
  - SYNCOPE [None]
